FAERS Safety Report 8384095-9 (Version None)
Quarter: 2012Q2

REPORT INFORMATION
  Report Type: 
  Country: None (occurrence: None)
  Receive Date: 20120524
  Receipt Date: 20120523
  Transmission Date: 20120825
  Serious: Yes (Other)
  Sender: FDA-Public Use
  Company Number: US-PFIZER INC-2012125030

PATIENT
  Sex: Male
  Weight: 96.145 kg

DRUGS (6)
  1. LIPITOR [Suspect]
     Dosage: UNK
     Dates: start: 20080101, end: 20080101
  2. METOPROLOL [Concomitant]
     Indication: HYPERTENSION
     Dosage: 25 MG, UNK
  3. LEVOTHYROXINE [Concomitant]
     Indication: THYROID DISORDER
     Dosage: 112 UG, UNK
  4. LIPITOR [Suspect]
     Indication: BLOOD CHOLESTEROL INCREASED
     Dosage: UNK
     Dates: start: 20060101
  5. PLAVIX [Concomitant]
     Indication: ANTICOAGULANT THERAPY
     Dosage: 75 MG, UNK
  6. METFORMIN [Concomitant]
     Indication: DIABETES MELLITUS
     Dosage: 500 MG, UNK

REACTIONS (2)
  - MYOCARDIAL INFARCTION [None]
  - GASTRIC ULCER [None]
